FAERS Safety Report 11769950 (Version 1)
Quarter: 2015Q4

REPORT INFORMATION
  Report Type: Spontaneous
  Country: US (occurrence: US)
  Receive Date: 20151123
  Receipt Date: 20151123
  Transmission Date: 20160304
  Serious: Yes (Death)
  Sender: FDA-Public Use
  Company Number: PHHY2015US148991

PATIENT
  Age: 53 Year
  Sex: Male

DRUGS (2)
  1. DEXTRO M [Concomitant]
     Indication: ATRIAL FLUTTER
     Dosage: 5 UNK, UNK
     Route: 042
  2. AMIODARONE [Suspect]
     Active Substance: AMIODARONE
     Indication: ATRIAL FLUTTER
     Dosage: 900 MG, UNK
     Route: 042

REACTIONS (2)
  - Hepatic failure [Fatal]
  - Multi-organ disorder [Fatal]
